FAERS Safety Report 11896584 (Version 1)
Quarter: 2016Q1

REPORT INFORMATION
  Report Type: Spontaneous
  Country: US (occurrence: US)
  Receive Date: 20160107
  Receipt Date: 20160107
  Transmission Date: 20160526
  Serious: No
  Sender: FDA-Public Use
  Company Number: US-PFIZER INC-2016003830

PATIENT
  Age: 58 Year
  Sex: Female

DRUGS (1)
  1. DAYPRO [Suspect]
     Active Substance: OXAPROZIN
     Indication: UPPER RESPIRATORY TRACT INFECTION
     Dosage: 1 DF, SINGLE 5 YEARS AGO
     Route: 048

REACTIONS (3)
  - Product use issue [Unknown]
  - Drug hypersensitivity [Unknown]
  - Urticaria [Unknown]
